FAERS Safety Report 16686795 (Version 1)
Quarter: 2019Q3

REPORT INFORMATION
  Report Type: Spontaneous
  Country: GB (occurrence: GB)
  Receive Date: 20190809
  Receipt Date: 20190809
  Transmission Date: 20191004
  Serious: Yes (Other)
  Sender: FDA-Public Use
  Company Number: GB-TEVA-2019-GB-1089635

PATIENT
  Age: 71 Year
  Sex: Female
  Weight: 71 kg

DRUGS (8)
  1. RAMIPRIL. [Concomitant]
     Active Substance: RAMIPRIL
     Dosage: AT NIGHT 1 DOSAGE FORMS
     Dates: start: 20190218, end: 20190409
  2. BENDROFLUMETHIAZIDE [Concomitant]
     Active Substance: BENDROFLUMETHIAZIDE
     Dosage: EACH MORNING 1 DOSAGE FORMS
     Dates: start: 20190409
  3. LOSARTAN. [Suspect]
     Active Substance: LOSARTAN
     Dosage: 100 MG
     Dates: start: 20190409
  4. DOXAZOSIN [Concomitant]
     Active Substance: DOXAZOSIN MESYLATE
     Dosage: 1 DOSAGE FORMS
     Dates: start: 20190418
  5. CYANOCOBALAMIN. [Concomitant]
     Active Substance: CYANOCOBALAMIN
     Dosage: 1 DOSAGE FORMS
     Dates: start: 20190218
  6. ADCAL [Concomitant]
     Dosage: 2 DOSAGE FORMS
     Dates: start: 20190219
  7. COZAAR [Concomitant]
     Active Substance: LOSARTAN POTASSIUM
     Dates: start: 20190410, end: 20190508
  8. FERROUS SULFATE. [Concomitant]
     Active Substance: FERROUS SULFATE
     Dosage: AS SUGGESTED BY GASTROENTEROLOGY 2 DOSAGE FORMS
     Dates: start: 20190218

REACTIONS (2)
  - Lethargy [Recovered/Resolved]
  - Pain [Unknown]

NARRATIVE: CASE EVENT DATE: 20190703
